FAERS Safety Report 9145285 (Version 1)
Quarter: 2013Q1

REPORT INFORMATION
  Report Type: Spontaneous
  Country: US (occurrence: None)
  Receive Date: 20130226
  Receipt Date: 20130226
  Transmission Date: 20140127
  Serious: No
  Sender: FDA-Public Use
  Company Number: None

PATIENT
  Age: 31 Year
  Sex: Female
  Weight: 84.8 kg

DRUGS (3)
  1. LATUDA [Suspect]
     Indication: SCHIZOAFFECTIVE DISORDER
     Dosage: 80MG DAILY PO
     Route: 048
     Dates: start: 20121004, end: 20121016
  2. LATUDA [Suspect]
     Indication: DELUSION
     Dosage: 80MG DAILY PO
     Route: 048
     Dates: start: 20121004, end: 20121016
  3. LATUDA [Suspect]
     Dosage: 80MG DAILY PO
     Route: 048
     Dates: start: 20121004, end: 20121016

REACTIONS (1)
  - Amenorrhoea [None]
